FAERS Safety Report 5884790-7 (Version None)
Quarter: 2008Q3

REPORT INFORMATION
  Report Type: 
  Country: None (occurrence: None)
  Receive Date: 20080916
  Receipt Date: 20080907
  Transmission Date: 20090109
  Serious: Yes (Other)
  Sender: FDA-Public Use
  Company Number: US-AMGEN-QUU306270

PATIENT
  Sex: Female

DRUGS (2)
  1. ENBREL [Suspect]
     Indication: RHEUMATOID ARTHRITIS
     Route: 058
     Dates: start: 20080128
  2. PLAQUENIL [Concomitant]

REACTIONS (8)
  - ARTHRALGIA [None]
  - BONE DISORDER [None]
  - CYST [None]
  - INCISION SITE INFECTION [None]
  - OSTEOPOROSIS [None]
  - PAIN IN EXTREMITY [None]
  - PELVIC FRACTURE [None]
  - THROMBOSIS [None]
